FAERS Safety Report 22629007 (Version 2)
Quarter: 2024Q1

REPORT INFORMATION
  Report Type: Spontaneous
  Country: FR (occurrence: FR)
  Receive Date: 20230622
  Receipt Date: 20240119
  Transmission Date: 20240410
  Serious: Yes (Other)
  Sender: FDA-Public Use
  Company Number: None

PATIENT
  Age: 20 Year
  Sex: Male
  Weight: 66 kg

DRUGS (7)
  1. KEYTRUDA [Suspect]
     Active Substance: PEMBROLIZUMAB
     Indication: Metastatic malignant melanoma
     Dosage: 200 MILLIGRAM, Q3W
     Route: 042
     Dates: start: 20230120, end: 20230306
  2. TAFINLAR [Suspect]
     Active Substance: DABRAFENIB MESYLATE
     Indication: Metastatic malignant melanoma
     Dosage: 300 MILLIGRAM, QD
     Route: 048
     Dates: start: 20230306, end: 20230429
  3. TAFINLAR [Suspect]
     Active Substance: DABRAFENIB MESYLATE
     Dosage: UNK
     Route: 065
     Dates: start: 202303
  4. TAFINLAR [Suspect]
     Active Substance: DABRAFENIB MESYLATE
     Dosage: UNK
     Route: 065
     Dates: start: 202012
  5. MEKINIST [Suspect]
     Active Substance: TRAMETINIB DIMETHYL SULFOXIDE
     Indication: Metastatic malignant melanoma
     Dosage: 2 MG, QD
     Route: 048
     Dates: start: 20230306, end: 20230429
  6. MEKINIST [Suspect]
     Active Substance: TRAMETINIB DIMETHYL SULFOXIDE
     Dosage: UNK
     Route: 065
     Dates: start: 202012
  7. MEKINIST [Suspect]
     Active Substance: TRAMETINIB DIMETHYL SULFOXIDE
     Dosage: UNK
     Route: 065
     Dates: start: 202303

REACTIONS (14)
  - Metastases to lymph nodes [Unknown]
  - Keratitis [Not Recovered/Not Resolved]
  - Metastases to lung [Unknown]
  - Metastases to spine [Unknown]
  - Ulcerative keratitis [Recovered/Resolved]
  - Corneal thinning [Unknown]
  - Therapeutic product effect incomplete [Unknown]
  - Sinusitis [Unknown]
  - Nasopharyngitis [Unknown]
  - Visual acuity reduced [Recovering/Resolving]
  - Arthritis [Recovered/Resolved]
  - Parotid gland enlargement [Recovered/Resolved]
  - Enteritis [Unknown]
  - Lymphadenopathy [Unknown]

NARRATIVE: CASE EVENT DATE: 20230301
